FAERS Safety Report 17923036 (Version 1)
Quarter: 2020Q2

REPORT INFORMATION
  Report Type: Spontaneous
  Country: US (occurrence: US)
  Receive Date: 20200621
  Receipt Date: 20200621
  Transmission Date: 20200714
  Serious: Yes (Hospitalization, Other)
  Sender: FDA-Public Use
  Company Number: None

PATIENT
  Age: 30 Year
  Sex: Female
  Weight: 58.5 kg

DRUGS (5)
  1. BAYER [Concomitant]
     Active Substance: ASPIRIN
  2. METOPROLOL ER SUCCINATE 25 MG TABS [Suspect]
     Active Substance: METOPROLOL SUCCINATE
     Indication: PRODUCT USED FOR UNKNOWN INDICATION
     Dosage: ?          QUANTITY:1 TABLET(S);?
     Route: 048
  3. IBUPROFEN 200MG [Concomitant]
     Active Substance: IBUPROFEN
  4. ONE A DAY WOMENS MULTIVITAMIN [Concomitant]
  5. SEROQUEL XR [Suspect]
     Active Substance: QUETIAPINE FUMARATE
     Indication: SCHIZOPHRENIA
     Dosage: ?          QUANTITY:1 TABLET(S);?
     Route: 048

REACTIONS (5)
  - Sleep disorder [None]
  - Overdose [None]
  - Weight increased [None]
  - Schizophrenia [None]
  - Headache [None]

NARRATIVE: CASE EVENT DATE: 20200620
